FAERS Safety Report 10347835 (Version 1)
Quarter: 2014Q3

REPORT INFORMATION
  Report Type: Spontaneous
  Country: US (occurrence: None)
  Receive Date: 20140725
  Receipt Date: 20140725
  Transmission Date: 20150326
  Serious: Yes (Hospitalization)
  Sender: FDA-Public Use
  Company Number: UNT-2014-002382

PATIENT
  Age: 77 Year
  Sex: Male
  Weight: 74.8 kg

DRUGS (3)
  1. WARFARIN (WARFARIN) [Concomitant]
     Active Substance: WARFARIN
  2. TYVASO [Suspect]
     Active Substance: TREPROSTINIL
     Indication: PULMONARY ARTERIAL HYPERTENSION
     Route: 055
     Dates: start: 20101123, end: 20140524
  3. REVATIO (SILDENAFIL CITRATE) [Concomitant]

REACTIONS (3)
  - Transient ischaemic attack [None]
  - Fall [None]
  - Functional residual capacity decreased [None]

NARRATIVE: CASE EVENT DATE: 20140319
